FAERS Safety Report 19723018 (Version 2)
Quarter: 2021Q3

REPORT INFORMATION
  Report Type: Spontaneous
  Country: US (occurrence: US)
  Receive Date: 20210819
  Receipt Date: 20210920
  Transmission Date: 20211014
  Serious: No
  Sender: FDA-Public Use
  Company Number: US-ASTRAZENECA-2021A648839

PATIENT
  Age: 853 Month
  Sex: Male

DRUGS (1)
  1. BUDESONIDE AND FORMOTEROL [Suspect]
     Active Substance: BUDESONIDE\FORMOTEROL
     Indication: CHRONIC OBSTRUCTIVE PULMONARY DISEASE
     Dosage: MORE THAN 2 PUFFS TWICE A DAY (REPORTEDLY ABOUT ABOUT EVERY 4 HOURS)
     Route: 055
     Dates: start: 202107

REACTIONS (4)
  - Device malfunction [Unknown]
  - Intentional product misuse [Unknown]
  - Device use issue [Not Recovered/Not Resolved]
  - Dyspnoea [Not Recovered/Not Resolved]

NARRATIVE: CASE EVENT DATE: 202107
